FAERS Safety Report 8559913-1 (Version None)
Quarter: 2012Q3

REPORT INFORMATION
  Report Type: 
  Country: None (occurrence: None)
  Receive Date: 20120802
  Receipt Date: 20120730
  Transmission Date: 20120928
  Serious: Yes (Other)
  Sender: FDA-Public Use
  Company Number: PHHY2012ES065860

PATIENT
  Age: 22 Year
  Sex: Male

DRUGS (2)
  1. CLOZAPINE [Suspect]
     Dosage: UNK UKN, UNK
  2. CLOZAPINE [Suspect]
     Dosage: 250 MG, UNK

REACTIONS (3)
  - OVERWEIGHT [None]
  - DIABETES MELLITUS [None]
  - METABOLIC DISORDER [None]
